FAERS Safety Report 4816686-3 (Version None)
Quarter: 2005Q4

REPORT INFORMATION
  Report Type: 
  Country: None (occurrence: None)
  Receive Date: 20051101
  Receipt Date: 20051010
  Transmission Date: 20060501
  Serious: Yes (Hospitalization, Other)
  Sender: FDA-Public Use
  Company Number: US-KINGPHARMUSA00001-K200501338

PATIENT
  Age: 55 Year
  Sex: Male

DRUGS (10)
  1. ALTACE [Suspect]
     Dosage: 2.5 MG, QD
  2. AMLODIPINE [Suspect]
     Dosage: 5 TO 10 MG, QD
  3. ISOSORBIDE MONONITRATE [Suspect]
     Dosage: 60 MG, QD
  4. METFORMIN HCL [Suspect]
     Dosage: 2550 MG, QD
  5. ASPIRIN [Suspect]
     Dosage: 75 MG, QD
  6. ATORVASTATIN CALCIUM [Suspect]
     Dosage: 10 MG, QD
  7. BENDROFLUMETHIAZIDE [Suspect]
     Dosage: 2.5 MG, QD
  8. PIOGLITAZONE HCL [Suspect]
     Dosage: 15 MG, QD
  9. METHYLDOPA [Suspect]
     Dosage: 750 MG, QD
  10. HYDRALAZINE HYDROCHLORIDE [Suspect]
     Dosage: 100 MG, QD

REACTIONS (14)
  - ATRIAL FIBRILLATION [None]
  - BLOOD PRESSURE INCREASED [None]
  - CEREBRAL HAEMATOMA [None]
  - CEREBRAL INFARCTION [None]
  - DYSARTHRIA [None]
  - GLUCOSE URINE PRESENT [None]
  - HAEMORRHAGIC STROKE [None]
  - HEMIANOPIA HOMONYMOUS [None]
  - HEMIPARESIS [None]
  - HYPERTENSION [None]
  - ISCHAEMIC STROKE [None]
  - PROTEINURIA [None]
  - SOMNOLENCE [None]
  - VENTRICULAR HYPERTROPHY [None]
